FAERS Safety Report 21418289 (Version 1)
Quarter: 2022Q4

REPORT INFORMATION
  Report Type: Other
  Country: CA (occurrence: CA)
  Receive Date: 20221006
  Receipt Date: 20221006
  Transmission Date: 20230113
  Serious: Yes (Other)
  Sender: FDA-Public Use
  Company Number: CA-PFIZER INC-202201195666

PATIENT
  Age: 53 Year
  Sex: Male

DRUGS (7)
  1. LEVOFLOXACIN [Suspect]
     Active Substance: LEVOFLOXACIN
     Dosage: UNK
  2. NOREPINEPHRINE BITARTRATE [Suspect]
     Active Substance: NOREPINEPHRINE BITARTRATE
     Dosage: UNK
  3. VANCOMYCIN HYDROCHLORIDE [Suspect]
     Active Substance: VANCOMYCIN HYDROCHLORIDE
     Dosage: UNK
  4. ASPIRIN [Suspect]
     Active Substance: ASPIRIN
     Indication: Myocarditis
     Dosage: UNK
  5. COLCHICINE [Suspect]
     Active Substance: COLCHICINE
     Dosage: UNK
  6. OSELTAMIVIR [Suspect]
     Active Substance: OSELTAMIVIR
     Dosage: UNK
  7. PIPERACILLIN SODIUM\TAZOBACTAM SODIUM [Suspect]
     Active Substance: PIPERACILLIN SODIUM\TAZOBACTAM SODIUM
     Dosage: UNK

REACTIONS (6)
  - Compartment syndrome [Unknown]
  - Contraindicated product administered [Unknown]
  - Off label use [Unknown]
  - Pneumonia [Unknown]
  - Renal failure [Unknown]
  - Rhabdomyolysis [Unknown]
